FAERS Safety Report 8952495 (Version 1)
Quarter: 2012Q4

REPORT INFORMATION
  Report Type: 
  Country: EC (occurrence: EC)
  Receive Date: 20121205
  Receipt Date: 20121205
  Transmission Date: 20130627
  Serious: Yes (Other)
  Sender: FDA-Public Use
  Company Number: PHHY2012EC110737

PATIENT
  Age: 100 Year
  Sex: Female

DRUGS (3)
  1. DIOVAN [Suspect]
     Dosage: 80 mg, UNK
     Route: 048
     Dates: end: 20121018
  2. DIOVAN [Suspect]
     Dosage: 80 mg, UNK
     Route: 048
     Dates: start: 20121102, end: 20121105
  3. ENALAPRIL [Concomitant]
     Dosage: UNK UKN, UNK
     Route: 048
     Dates: end: 20121101

REACTIONS (3)
  - Hip fracture [Recovering/Resolving]
  - Dysuria [Recovering/Resolving]
  - Unevaluable event [Unknown]
